FAERS Safety Report 8547706-0 (Version None)
Quarter: 2012Q3

REPORT INFORMATION
  Report Type: 
  Country: None (occurrence: None)
  Receive Date: 20120727
  Receipt Date: 20120427
  Transmission Date: 20120928
  Serious: No
  Sender: FDA-Public Use
  Company Number: US-ASTRAZENECA-2012SE27868

PATIENT
  Age: 47 Year
  Sex: Male
  Weight: 113.4 kg

DRUGS (3)
  1. LAMICTAL [Concomitant]
  2. SEROQUEL [Suspect]
     Route: 048
     Dates: start: 20120401
  3. SEROQUEL [Suspect]
     Indication: INSOMNIA
     Route: 048
     Dates: start: 20090901, end: 20120401

REACTIONS (6)
  - DISTURBANCE IN ATTENTION [None]
  - MUSCLE TWITCHING [None]
  - NERVOUSNESS [None]
  - TREMOR [None]
  - FEELING ABNORMAL [None]
  - MEMORY IMPAIRMENT [None]
